FAERS Safety Report 9583249 (Version 1)
Quarter: 2013Q4

REPORT INFORMATION
  Report Type: Spontaneous
  Country: US (occurrence: US)
  Receive Date: 20131002
  Receipt Date: 20131002
  Transmission Date: 20140711
  Serious: No
  Sender: FDA-Public Use
  Company Number: US-AMGEN-USASP2013046313

PATIENT
  Age: 46 Year
  Sex: Female
  Weight: 54.42 kg

DRUGS (11)
  1. ENBREL [Suspect]
     Indication: PRODUCT USED FOR UNKNOWN INDICATION
     Dosage: 25 MG, 2 TIMES/WK
     Route: 058
  2. ALDACTONE                          /00006201/ [Concomitant]
     Dosage: 25 MG, UNK
  3. TRAMADOL HCL [Concomitant]
     Dosage: 50 MG, UNK
  4. DIFLORASONE [Concomitant]
     Dosage: 0.05
  5. VITAMIN D3 [Concomitant]
     Dosage: 400 UNIT, UNK
  6. FISH OIL [Concomitant]
     Dosage: UNK
  7. VITAMIN B COMPLEX [Concomitant]
     Dosage: UNK
  8. ACIDOPHILUS [Concomitant]
     Dosage: UNK
  9. VITAMIN C                          /00008001/ [Concomitant]
     Dosage: 500 MG, UNK
  10. ETODOLAC [Concomitant]
     Dosage: 200 MG, UNK
  11. TYLENOL                            /00020001/ [Concomitant]
     Dosage: 325 MG, UNK

REACTIONS (2)
  - Dry eye [Unknown]
  - Eye irritation [Unknown]
